FAERS Safety Report 13532216 (Version 1)
Quarter: 2017Q2

REPORT INFORMATION
  Report Type: Spontaneous
  Country: US (occurrence: US)
  Receive Date: 20170510
  Receipt Date: 20170510
  Transmission Date: 20170830
  Serious: No
  Sender: FDA-Public Use
  Company Number: US-MISSION PHARMACAL COMPANY-2020520

PATIENT
  Age: 17 Year
  Sex: Female

DRUGS (1)
  1. THIOLA [Suspect]
     Active Substance: TIOPRONIN
     Indication: CYSTINURIA
     Route: 065
     Dates: start: 20160810

REACTIONS (7)
  - Face oedema [Unknown]
  - Malaise [None]
  - Pain in extremity [Unknown]
  - Fluid retention [Unknown]
  - Drug dose omission [Unknown]
  - Quality of life decreased [None]
  - Oedema peripheral [Unknown]
